FAERS Safety Report 16557258 (Version 2)
Quarter: 2019Q3

REPORT INFORMATION
  Report Type: Spontaneous
  Country: US (occurrence: US)
  Receive Date: 20190711
  Receipt Date: 20190801
  Transmission Date: 20191004
  Serious: No
  Sender: FDA-Public Use
  Company Number: US-GLENMARK PHARMACEUTICALS-2019GMK042007

PATIENT
  Sex: Female

DRUGS (3)
  1. IMIQUIMOD CREAM USP, 5% [Suspect]
     Active Substance: IMIQUIMOD
     Indication: EXTRAMAMMARY PAGET^S DISEASE
     Dosage: UNK
     Route: 065
  2. FLUOROURACIL. [Concomitant]
     Active Substance: FLUOROURACIL
     Indication: EXTRAMAMMARY PAGET^S DISEASE
     Dosage: UNK, BID (TWICE DAILY FOR 3 TO 4 DAYS PER MONTH)
     Route: 061
  3. CALCIPOTRIENE. [Suspect]
     Active Substance: CALCIPOTRIENE
     Indication: EXTRAMAMMARY PAGET^S DISEASE
     Dosage: UNK, BID (TWICE DAILY FOR 3 TO 4 DAYS PERMONTH)
     Route: 061

REACTIONS (4)
  - Asthenia [Unknown]
  - Product use in unapproved indication [Unknown]
  - Drug effective for unapproved indication [Unknown]
  - Fatigue [Unknown]
